FAERS Safety Report 17300702 (Version 1)
Quarter: 2020Q1

REPORT INFORMATION
  Report Type: Spontaneous
  Country: US (occurrence: US)
  Receive Date: 20200122
  Receipt Date: 20200122
  Transmission Date: 20200409
  Serious: No
  Sender: FDA-Public Use
  Company Number: US-ALLERGAN-1952092US

PATIENT
  Sex: Female

DRUGS (1)
  1. RESTASIS [Suspect]
     Active Substance: CYCLOSPORINE
     Indication: DRY EYE

REACTIONS (5)
  - Visual impairment [Unknown]
  - Impaired driving ability [Unknown]
  - Photopsia [Unknown]
  - Vision blurred [Unknown]
  - Photosensitivity reaction [Unknown]
